FAERS Safety Report 9451032 (Version 6)
Quarter: 2013Q3

REPORT INFORMATION
  Report Type: Spontaneous
  Country: GB (occurrence: GB)
  Receive Date: 20130809
  Receipt Date: 20130911
  Transmission Date: 20140515
  Serious: Yes (Life-Threatening, Hospitalization, Other)
  Sender: FDA-Public Use
  Company Number: GB-ABBOTT-13P-167-1128920-00

PATIENT
  Age: 48 Year
  Sex: Male
  Weight: 61 kg

DRUGS (1)
  1. HUMIRA [Suspect]
     Indication: PSORIASIS
     Route: 058
     Dates: start: 201203, end: 201307

REACTIONS (8)
  - Neck mass [Unknown]
  - Neck mass [Unknown]
  - Pain [Unknown]
  - Lymphadenectomy [Unknown]
  - Hodgkin^s disease [Unknown]
  - Hodgkin^s disease [Unknown]
  - Non-Hodgkin^s lymphoma stage II [Not Recovered/Not Resolved]
  - Shock [Unknown]
